FAERS Safety Report 5068467-6 (Version None)
Quarter: 2006Q3

REPORT INFORMATION
  Report Type: 
  Country: None (occurrence: None)
  Receive Date: 20060802
  Receipt Date: 20051012
  Transmission Date: 20061208
  Serious: No
  Sender: FDA-Public Use
  Company Number: US-BRISTOL-MYERS SQUIBB COMPANY-13142716

PATIENT
  Sex: Female
  Weight: 127 kg

DRUGS (17)
  1. COUMADIN [Suspect]
     Indication: THROMBOSIS
     Dates: start: 20050501
  2. PREDNISONE [Concomitant]
  3. PROGRAF [Concomitant]
  4. REGLAN [Concomitant]
  5. PREVACID [Concomitant]
  6. LACTINEX [Concomitant]
  7. ASPIRIN [Concomitant]
  8. MULTI-VITAMIN [Concomitant]
  9. FOLIC ACID [Concomitant]
  10. MAGNESIUM [Concomitant]
  11. IRON [Concomitant]
  12. FISH OIL [Concomitant]
  13. FLAXSEED OIL [Concomitant]
  14. CALCIUM CARBONATE [Concomitant]
  15. FLORINEF [Concomitant]
  16. SALT [Concomitant]
  17. CRANBERRY [Concomitant]

REACTIONS (1)
  - INTERNATIONAL NORMALISED RATIO DECREASED [None]
